FAERS Safety Report 5222511-1 (Version None)
Quarter: 2007Q1

REPORT INFORMATION
  Report Type: 
  Country: None (occurrence: None)
  Receive Date: 20070129
  Receipt Date: 20070124
  Transmission Date: 20070707
  Serious: Yes (Hospitalization)
  Sender: FDA-Public Use
  Company Number: US-BRISTOL-MYERS SQUIBB COMPANY-13448923

PATIENT
  Age: 58 Year
  Sex: Male

DRUGS (1)
  1. DASATINIB [Suspect]
     Indication: LEUKAEMIA
     Route: 048
     Dates: start: 20060504, end: 20060714

REACTIONS (1)
  - PLEURAL EFFUSION [None]
